FAERS Safety Report 9290960 (Version 3)
Quarter: 2014Q1

REPORT INFORMATION
  Report Type: Spontaneous
  Country: IT (occurrence: None)
  Receive Date: 20130513
  Receipt Date: 20140226
  Transmission Date: 20141002
  Serious: Yes (Hospitalization, Other)
  Sender: FDA-Public Use
  Company Number: 2013AP004963

PATIENT
  Age: 32 Year
  Sex: Female

DRUGS (5)
  1. VENLAFAXINE HYDROCHLORIDE [Suspect]
     Indication: SELF-INJURIOUS IDEATION
  2. SERTRALINE HYDROCHLORIDE [Suspect]
     Indication: SELF-INJURIOUS IDEATION
  3. DELORAZEPAM (DELORAZEPAM) [Suspect]
     Indication: SELF-INJURIOUS IDEATION
  4. BROMAZEPAM (BROMAZEPAM) [Suspect]
     Indication: SELF-INJURIOUS IDEATION
  5. ESCITALOPRAM OXALATE (ESCITALOPRAM OXALATE) [Suspect]
     Indication: SELF-INJURIOUS IDEATION

REACTIONS (8)
  - Drug abuse [None]
  - Lethargy [None]
  - Mydriasis [None]
  - Speech disorder [None]
  - Face injury [None]
  - Sedation [None]
  - Fall [None]
  - Face injury [None]
